FAERS Safety Report 5922534-0 (Version None)
Quarter: 2008Q4

REPORT INFORMATION
  Report Type: 
  Country: None (occurrence: None)
  Receive Date: 20081017
  Receipt Date: 20081008
  Transmission Date: 20090506
  Serious: Yes (Other)
  Sender: FDA-Public Use
  Company Number: PHHY2008GB24076

PATIENT
  Sex: Male

DRUGS (1)
  1. CLOZARIL [Suspect]
     Indication: SCHIZOPHRENIA
     Dosage: UNK
     Dates: start: 19981214

REACTIONS (4)
  - EOSINOPHIL COUNT INCREASED [None]
  - EOSINOPHILIA [None]
  - LYMPHOCYTE STIMULATION TEST POSITIVE [None]
  - RED BLOOD CELL MORPHOLOGY ABNORMAL [None]
